FAERS Safety Report 7694341-2 (Version None)
Quarter: 2011Q3

REPORT INFORMATION
  Report Type: 
  Country: None (occurrence: None)
  Receive Date: 20110819
  Receipt Date: 20110809
  Transmission Date: 20111222
  Serious: Yes (Other)
  Sender: FDA-Public Use
  Company Number: US-JNJFOC-20110805239

PATIENT
  Sex: Female
  Weight: 136.08 kg

DRUGS (15)
  1. REMICADE [Suspect]
     Indication: CROHN'S DISEASE
     Route: 042
     Dates: start: 20080101
  2. WARFARIN SODIUM [Concomitant]
     Indication: ARRHYTHMIA
     Route: 048
     Dates: end: 20110807
  3. CLOTRIMAZOL [Concomitant]
     Indication: ANTIFUNGAL PROPHYLAXIS
     Route: 061
  4. LEVOXYL [Concomitant]
     Indication: HYPOTHYROIDISM
     Route: 048
  5. FLUTICASONE PROPIONATE [Concomitant]
     Dosage: 50MCG/SOLUTION/50MCG/2 PUFFS EACH NOSTRIL DAILY/NASAL SPRAY
  6. KLOR-CON [Concomitant]
     Indication: MINERAL SUPPLEMENTATION
     Route: 048
  7. MERCAPTOPURINE [Concomitant]
     Route: 048
  8. STATIN DRUGS [Suspect]
     Indication: BLOOD CHOLESTEROL INCREASED
  9. AVALIDE [Concomitant]
     Indication: HYPERTENSION
     Dosage: 150-12.5MG/TABLET
     Route: 048
  10. CARTIA XT [Concomitant]
     Indication: ARRHYTHMIA
  11. ALBUTEROL SULFATE AUTOHALER [Concomitant]
     Dosage: 17G/AEROSOL/17G/2 PUFFS AS NEEDED
     Route: 055
  12. TOPROL-XL [Concomitant]
     Indication: ARRHYTHMIA
     Route: 048
  13. AVALIDE [Concomitant]
     Indication: DIURETIC THERAPY
     Dosage: 150-12.5MG/TABLET
     Route: 048
  14. WARFARIN SODIUM [Concomitant]
     Indication: ANTICOAGULANT THERAPY
     Route: 048
     Dates: end: 20110807
  15. SYMBICORT [Concomitant]
     Indication: LUNG DISORDER
     Dosage: 160-4.5MG/AEROSOL/160-4.5MG/2 PUFFS ONCE  DAILY
     Route: 055

REACTIONS (9)
  - DYSPNOEA [None]
  - WEIGHT INCREASED [None]
  - CARDIAC MURMUR [None]
  - LIP DISCOLOURATION [None]
  - BLOOD CHOLESTEROL INCREASED [None]
  - MOBILITY DECREASED [None]
  - LIVER DISORDER [None]
  - ARTHRITIS [None]
  - INCONTINENCE [None]
